FAERS Safety Report 4472469-8 (Version None)
Quarter: 2004Q4

REPORT INFORMATION
  Report Type: 
  Country: None (occurrence: None)
  Receive Date: 20041007
  Receipt Date: 20040923
  Transmission Date: 20050328
  Serious: Yes (Death)
  Sender: FDA-Public Use
  Company Number: 209255

PATIENT
  Age: 67 Year
  Sex: Male
  Weight: 94.3 kg

DRUGS (14)
  1. AVASTIN [Suspect]
     Indication: COLORECTAL CANCER METASTATIC
     Dosage: 5 MG/KG, Q2W, INTRAVENOUS
     Route: 042
     Dates: start: 20040311, end: 20040917
  2. CPT-11 (IRINOTECAN HYDROCHLORIDE) [Concomitant]
  3. FLUOROURACIL [Concomitant]
  4. INNOHEP [Concomitant]
  5. LOVENOX [Concomitant]
  6. ANZEMET [Concomitant]
  7. COMPAZINE [Concomitant]
  8. PHENERGAN [Concomitant]
  9. LOPERAMIDE [Concomitant]
  10. ENALAPRIL MALEATE [Concomitant]
  11. LIPITOR [Concomitant]
  12. HYDROCHLOROTHIAZIDE [Concomitant]
  13. ASPIRIN [Concomitant]
  14. STOOL SOFTENER (STOOL SOFTENER NOS) [Concomitant]

REACTIONS (18)
  - BLOOD CREATININE INCREASED [None]
  - BLOOD GLUCOSE INCREASED [None]
  - BLOOD POTASSIUM DECREASED [None]
  - BLOOD SODIUM DECREASED [None]
  - BLOOD UREA INCREASED [None]
  - CARDIOPULMONARY FAILURE [None]
  - DEHYDRATION [None]
  - ELECTROMECHANICAL DISSOCIATION [None]
  - FALL [None]
  - HAEMATEMESIS [None]
  - HEMIPARESIS [None]
  - HYPOTENSION [None]
  - LOSS OF CONSCIOUSNESS [None]
  - METASTASES TO CENTRAL NERVOUS SYSTEM [None]
  - MYOCARDIAL INFARCTION [None]
  - PULMONARY EMBOLISM [None]
  - TACHYCARDIA [None]
  - VOMITING [None]
